FAERS Safety Report 4600817-4 (Version None)
Quarter: 2005Q1

REPORT INFORMATION
  Report Type: 
  Country: None (occurrence: None)
  Receive Date: 20050304
  Receipt Date: 20050223
  Transmission Date: 20050727
  Serious: Yes (Death)
  Sender: FDA-Public Use
  Company Number: 2004JP002293

PATIENT
  Age: 53 Year
  Sex: Female

DRUGS (2)
  1. PROGRAF [Suspect]
     Indication: BONE MARROW TRANSPLANT
     Dosage: SEE IMAGE
     Dates: start: 20040113, end: 20040403
  2. METHOTREXATE [Concomitant]

REACTIONS (11)
  - ALLOGENIC BONE MARROW TRANSPLANTATION THERAPY [None]
  - EPSTEIN-BARR VIRUS INFECTION [None]
  - HEPATITIS ACUTE [None]
  - HEPATITIS INFECTIOUS MONONUCLEOSIS [None]
  - INFECTION IN AN IMMUNOCOMPROMISED HOST [None]
  - LYMPHOCYTE MORPHOLOGY ABNORMAL [None]
  - LYMPHOPROLIFERATIVE DISORDER [None]
  - MULTI-ORGAN FAILURE [None]
  - PANCYTOPENIA [None]
  - POST PROCEDURAL COMPLICATION [None]
  - TRANSPLANT FAILURE [None]
